FAERS Safety Report 24279398 (Version 3)
Quarter: 2024Q3

REPORT INFORMATION
  Report Type: Spontaneous
  Country: JP (occurrence: JP)
  Receive Date: 20240903
  Receipt Date: 20240920
  Transmission Date: 20241017
  Serious: Yes (Other)
  Sender: JOHNSON AND JOHNSON
  Company Number: JP-JNJFOC-A-CH2016-146301

PATIENT
  Age: 60 Year
  Sex: Female

DRUGS (11)
  1. TRACLEER [Suspect]
     Active Substance: BOSENTAN
     Indication: Scleroderma associated digital ulcer
     Dosage: 62.5 MG, OD
     Route: 048
     Dates: start: 20161031, end: 20161113
  2. TRACLEER [Suspect]
     Active Substance: BOSENTAN
     Indication: Skin ulcer
     Dosage: IN THE MORNING
     Route: 048
     Dates: start: 20161031, end: 20161113
  3. TRACLEER [Suspect]
     Active Substance: BOSENTAN
     Indication: Hepatic function abnormal
     Dosage: 62.5 MG, BID, IN THE MORNING AND EVENING
     Route: 048
     Dates: start: 20161114, end: 20161128
  4. TRACLEER [Suspect]
     Active Substance: BOSENTAN
     Dosage: IN THE MORNING
     Route: 048
     Dates: start: 20161226, end: 20170110
  5. ACETAMINOPHEN\TRAMADOL [Suspect]
     Active Substance: ACETAMINOPHEN\TRAMADOL
     Indication: Product used for unknown indication
     Route: 048
     Dates: start: 20160808
  6. ALPROSTADIL [Concomitant]
     Active Substance: ALPROSTADIL
  7. BERAPROST SODIUM [Concomitant]
     Active Substance: BERAPROST SODIUM
     Route: 048
     Dates: start: 20160808
  8. AMLODIPINE [Concomitant]
     Active Substance: AMLODIPINE BESYLATE
     Route: 048
  9. HYDROCHLOROTHIAZIDE\LOSARTAN POTASSIUM [Concomitant]
     Active Substance: HYDROCHLOROTHIAZIDE\LOSARTAN POTASSIUM
  10. ULTRACET [Concomitant]
     Active Substance: ACETAMINOPHEN\TRAMADOL HYDROCHLORIDE
  11. ALPROSTADIL [Concomitant]
     Active Substance: ALPROSTADIL
     Indication: Skin ulcer
     Route: 042

REACTIONS (5)
  - Hepatic function abnormal [Recovering/Resolving]
  - Aspartate aminotransferase increased [Recovering/Resolving]
  - Blood alkaline phosphatase increased [Recovering/Resolving]
  - Alanine aminotransferase increased [Recovering/Resolving]
  - Off label use [Unknown]

NARRATIVE: CASE EVENT DATE: 20161031
